FAERS Safety Report 11652860 (Version 3)
Quarter: 2016Q2

REPORT INFORMATION
  Report Type: Spontaneous
  Country: JP (occurrence: JP)
  Receive Date: 20151022
  Receipt Date: 20160421
  Transmission Date: 20160815
  Serious: Yes (Death)
  Sender: FDA-Public Use
  Company Number: JP-ACTELION-A-CH2015-125787

PATIENT
  Age: 63 Year
  Sex: Female

DRUGS (11)
  1. TADALAFIL [Concomitant]
     Active Substance: TADALAFIL
  2. ALENDRONATE SODIUM. [Concomitant]
     Active Substance: ALENDRONATE SODIUM
  3. CICLOSPORIN [Concomitant]
     Active Substance: CYCLOSPORINE
  4. LANSOPRAZOLE. [Concomitant]
     Active Substance: LANSOPRAZOLE
  5. DIMEMORFAN PHOSPHATE [Concomitant]
     Active Substance: DIMEMORFAN PHOSPHATE
  6. SARPOGRELATE HYDROCHLORIDE [Concomitant]
     Active Substance: SARPOGRELATE
  7. PRAVASTATIN SODIUM. [Concomitant]
     Active Substance: PRAVASTATIN SODIUM
  8. FERROUS SODIUM CITRATE [Concomitant]
     Active Substance: SODIUM FERROUS CITRATE
  9. BERAPROST SODIUM [Concomitant]
     Active Substance: BERAPROST SODIUM
  10. OPSUMIT [Suspect]
     Active Substance: MACITENTAN
     Indication: PULMONARY ARTERIAL HYPERTENSION
     Dosage: 10 MG, QD
     Route: 048
     Dates: start: 20150730, end: 20150929
  11. REBAMIPIDE [Concomitant]
     Active Substance: REBAMIPIDE

REACTIONS (1)
  - Respiratory tract haemorrhage [Fatal]

NARRATIVE: CASE EVENT DATE: 20151011
